FAERS Safety Report 11628918 (Version 3)
Quarter: 2018Q1

REPORT INFORMATION
  Report Type: Spontaneous
  Country: FR (occurrence: FR)
  Receive Date: 20151014
  Receipt Date: 20180312
  Transmission Date: 20180508
  Serious: Yes (Hospitalization, Other)
  Sender: FDA-Public Use
  Company Number: FR-ELI_LILLY_AND_COMPANY-FR201510001458

PATIENT
  Age: 50 Year
  Sex: Female

DRUGS (13)
  1. ABILIFY MAINTENA [Suspect]
     Active Substance: ARIPIPRAZOLE
     Indication: MANIA
     Dosage: 400 MG, MONTHLY (1/M)
     Route: 030
     Dates: start: 20150730
  2. ABILIFY [Suspect]
     Active Substance: ARIPIPRAZOLE
     Dosage: 40 MG, DAILY
     Route: 048
     Dates: start: 20150811, end: 20150813
  3. LOXAPAC                            /00401801/ [Suspect]
     Active Substance: LOXAPINE
     Indication: MANIA
     Dosage: 300 MG, UNK
     Route: 048
     Dates: start: 20150711, end: 20150815
  4. ZOLPIDEM [Concomitant]
     Active Substance: ZOLPIDEM\ZOLPIDEM TARTRATE
     Indication: PRODUCT USED FOR UNKNOWN INDICATION
     Dosage: UNK, PRN
     Route: 048
     Dates: start: 20150711, end: 20150815
  5. ZOLPIDEM [Concomitant]
     Active Substance: ZOLPIDEM\ZOLPIDEM TARTRATE
     Dosage: UNK, PRN
     Route: 048
     Dates: start: 20150825
  6. ZOPICLONE [Suspect]
     Active Substance: ZOPICLONE
     Indication: PRODUCT USED FOR UNKNOWN INDICATION
     Dosage: 1 DF, PRN
     Route: 048
     Dates: start: 20150711, end: 20150815
  7. ZOLPIDEM [Concomitant]
     Active Substance: ZOLPIDEM\ZOLPIDEM TARTRATE
     Indication: PRODUCT USED FOR UNKNOWN INDICATION
     Dosage: UNK, PRN
     Route: 048
  8. ZYPREXA [Suspect]
     Active Substance: OLANZAPINE
     Indication: MANIA
     Dosage: 10 MG, QD
     Route: 048
     Dates: start: 20150711, end: 20150811
  9. VALIUM [Suspect]
     Active Substance: DIAZEPAM
     Indication: MANIA
     Dosage: 5 MG, QD
     Route: 048
     Dates: start: 20150711, end: 20150815
  10. LOXAPAC                            /00401801/ [Suspect]
     Active Substance: LOXAPINE
     Dosage: 2 DF, DAILY
     Route: 065
     Dates: start: 20150711, end: 20150815
  11. ABILIFY [Suspect]
     Active Substance: ARIPIPRAZOLE
     Dosage: 30 MG, DAILY
     Route: 048
     Dates: start: 20150711
  12. ZOLPIDEM [Concomitant]
     Active Substance: ZOLPIDEM\ZOLPIDEM TARTRATE
     Dosage: UNK, PRN
     Route: 048
     Dates: start: 20150825
  13. ABILIFY [Suspect]
     Active Substance: ARIPIPRAZOLE
     Indication: MANIA
     Dosage: 20 MG, DAILY
     Route: 048
     Dates: start: 20150711, end: 20150813

REACTIONS (5)
  - Pyelonephritis [Unknown]
  - Septic shock [Unknown]
  - Erythema [Unknown]
  - Pancytopenia [Recovered/Resolved]
  - Erysipelas [Unknown]

NARRATIVE: CASE EVENT DATE: 201508
